FAERS Safety Report 7471938-6 (Version None)
Quarter: 2011Q2

REPORT INFORMATION
  Report Type: 
  Country: None (occurrence: None)
  Receive Date: 20110511
  Receipt Date: 20100723
  Transmission Date: 20111010
  Serious: No
  Sender: FDA-Public Use
  Company Number: A0873849A

PATIENT
  Age: 65 Year
  Sex: Female
  Weight: 75 kg

DRUGS (3)
  1. RADIATION THERAPY [Concomitant]
  2. XELODA [Suspect]
     Route: 065
     Dates: start: 20100625
  3. TYKERB [Suspect]
     Dosage: 1250MG PER DAY
     Route: 048
     Dates: start: 20100625

REACTIONS (2)
  - UPPER RESPIRATORY TRACT INFECTION [None]
  - COUGH [None]
